FAERS Safety Report 8247732-5 (Version None)
Quarter: 2012Q1

REPORT INFORMATION
  Report Type: 
  Country: None (occurrence: None)
  Receive Date: 20120330
  Receipt Date: 20120323
  Transmission Date: 20120608
  Serious: Yes (Hospitalization)
  Sender: FDA-Public Use
  Company Number: US-GLAXOSMITHKLINE-A0967722A

PATIENT
  Age: 51 Year
  Sex: Female
  Weight: 56.8 kg

DRUGS (10)
  1. PAXIL [Suspect]
     Indication: DEPRESSION
     Route: 065
  2. WELLBUTRIN [Suspect]
     Indication: DEPRESSION
     Route: 065
  3. CRESTOR [Concomitant]
  4. PLAVIX [Concomitant]
  5. UNSPECIFIED MEDICATION [Suspect]
     Indication: DEPRESSION
     Route: 065
  6. TRICOR [Concomitant]
  7. AMLODIPINE [Concomitant]
  8. CLONAZEPAM [Concomitant]
  9. ASPIRIN [Concomitant]
  10. ADDERALL 5 [Concomitant]

REACTIONS (2)
  - SUICIDE ATTEMPT [None]
  - DEPRESSION [None]
